FAERS Safety Report 5506443-7 (Version None)
Quarter: 2007Q4

REPORT INFORMATION
  Report Type: 
  Country: None (occurrence: None)
  Receive Date: 20071101
  Receipt Date: 20071024
  Transmission Date: 20080405
  Serious: Yes (Death, Life-Threatening, Hospitalization)
  Sender: FDA-Public Use
  Company Number: 028-21880-07100412

PATIENT
  Age: 70 Year
  Sex: Female

DRUGS (12)
  1. REVLIMID [Suspect]
     Indication: 5Q-SYNDROME
     Dosage: 10 MG, 2 IN 1 D, ORAL; 5 MG, DAILY, ORAL
     Route: 048
     Dates: start: 20070822, end: 20070825
  2. REVLIMID [Suspect]
     Indication: 5Q-SYNDROME
     Dosage: 10 MG, 2 IN 1 D, ORAL; 5 MG, DAILY, ORAL
     Route: 048
     Dates: start: 20070901, end: 20070901
  3. REVLIMID [Suspect]
  4. PAMIDRONATE DISODIUM [Concomitant]
  5. LASIX [Concomitant]
  6. LEVOTHYROXINE SODIUM [Concomitant]
  7. PANCREASE (PANCRELIPASE) (CAPSULES) [Concomitant]
  8. QUINOLONE (QUINOLONE NOS) [Concomitant]
  9. METFORMIN HCL [Concomitant]
  10. GLYBURIDE [Concomitant]
  11. FLUCONAZOLE [Concomitant]
  12. MORPHINE [Concomitant]

REACTIONS (16)
  - ATRIAL FIBRILLATION [None]
  - DIABETES MELLITUS [None]
  - HYPONATRAEMIA [None]
  - ORAL CANDIDIASIS [None]
  - PANCYTOPENIA [None]
  - PERICARDIAL EFFUSION [None]
  - PERICARDITIS [None]
  - PLEURAL EFFUSION [None]
  - PNEUMONIA [None]
  - PSEUDOMONAS INFECTION [None]
  - PULMONARY OEDEMA [None]
  - RASH [None]
  - SEPSIS [None]
  - SINUS TACHYCARDIA [None]
  - URINARY TRACT INFECTION [None]
  - VAGINAL CANDIDIASIS [None]
